FAERS Safety Report 16522413 (Version 2)
Quarter: 2019Q3

REPORT INFORMATION
  Report Type: Spontaneous
  Country: US (occurrence: US)
  Receive Date: 20190703
  Receipt Date: 20190820
  Transmission Date: 20191004
  Serious: No
  Sender: FDA-Public Use
  Company Number: US-PFIZER INC-2019282800

PATIENT
  Age: 60 Year
  Sex: Female
  Weight: 72.57 kg

DRUGS (5)
  1. RELPAX [Suspect]
     Active Substance: ELETRIPTAN HYDROBROMIDE
     Dosage: 2 DF, UNK
     Route: 048
  2. RELPAX [Suspect]
     Active Substance: ELETRIPTAN HYDROBROMIDE
     Dosage: 2 DF, UNK
     Route: 048
  3. RELPAX [Suspect]
     Active Substance: ELETRIPTAN HYDROBROMIDE
     Indication: MIGRAINE
     Dosage: 40 MG, AS NEEDED (40MG, 1 BY MOUTH AS NEEDED AND CAN TAKE ANOTHER IN 2-3 HOURS IF NEEDED  )
  4. RELPAX [Suspect]
     Active Substance: ELETRIPTAN HYDROBROMIDE
     Indication: MIGRAINE
     Dosage: 40 MG, AS NEEDED (40MG, 1 BY MOUTH AS NEEDED AND CAN TAKE ANOTHER IN 2-3 HOURS IF NEEDED  )
     Route: 048
     Dates: start: 2010
  5. SYNTHROID [Concomitant]
     Active Substance: LEVOTHYROXINE SODIUM
     Indication: THYROID DISORDER
     Dosage: 0.75 MG, DAILY
     Route: 048

REACTIONS (2)
  - Panic disorder [Unknown]
  - Drug ineffective [Unknown]

NARRATIVE: CASE EVENT DATE: 201906
